FAERS Safety Report 20657116 (Version 1)
Quarter: 2022Q1

REPORT INFORMATION
  Report Type: Spontaneous
  Country: US (occurrence: US)
  Receive Date: 20220331
  Receipt Date: 20220331
  Transmission Date: 20220423
  Serious: Yes (Other)
  Sender: FDA-Public Use
  Company Number: US-AUROBINDO-AUR-APL-2022-009906

PATIENT
  Age: 58 Year
  Sex: Female

DRUGS (1)
  1. SULFAMETHOXAZOLE\TRIMETHOPRIM [Suspect]
     Active Substance: SULFAMETHOXAZOLE\TRIMETHOPRIM
     Indication: Urinary tract infection
     Dosage: UNK UNK, TWO TIMES A DAY
     Route: 065
     Dates: start: 20220316

REACTIONS (6)
  - Exophthalmos [Unknown]
  - Headache [Unknown]
  - Abdominal discomfort [Unknown]
  - Abdominal pain [Unknown]
  - Peripheral coldness [Unknown]
  - Abdominal distension [Unknown]
